FAERS Safety Report 20091871 (Version 1)
Quarter: 2021Q4

REPORT INFORMATION
  Report Type: Other
  Country: TH (occurrence: None)
  Receive Date: 20211119
  Receipt Date: 20211119
  Transmission Date: 20220303
  Serious: Yes (Other)
  Sender: FDA-Public Use
  Company Number: TH-Merck Healthcare KGaA-9279425

PATIENT
  Age: 62 Year
  Sex: Female

DRUGS (18)
  1. METFORMIN HYDROCHLORIDE [Suspect]
     Active Substance: METFORMIN HYDROCHLORIDE
     Indication: Product used for unknown indication
     Dates: start: 201905
  2. RIBOCICLIB [Suspect]
     Active Substance: RIBOCICLIB
     Indication: Product used for unknown indication
     Dates: start: 201909
  3. RIBOCICLIB [Suspect]
     Active Substance: RIBOCICLIB
     Dates: start: 202012
  4. CYCLOPHOSPHAMIDE;DOXORUBICIN;PACLITAXEL [Concomitant]
     Indication: Breast cancer
     Dates: start: 2008
  5. CYCLOPHOSPHAMIDE;DOCETAXEL [Concomitant]
     Indication: Breast cancer
     Dosage: 4 CYCLES
     Dates: start: 201507
  6. CYCLOPHOSPHAMIDE;DOCETAXEL [Concomitant]
     Dosage: 8 CYCLES
     Dates: start: 201802, end: 201808
  7. TAMOXIFEN [Concomitant]
     Active Substance: TAMOXIFEN
     Indication: Product used for unknown indication
     Dates: start: 201507, end: 201802
  8. LETROZOLE [Concomitant]
     Active Substance: LETROZOLE
     Indication: Product used for unknown indication
     Dates: start: 201808, end: 201905
  9. GLIPIZIDE [Concomitant]
     Active Substance: GLIPIZIDE
     Indication: Product used for unknown indication
     Dates: start: 201905
  10. LOSARTAN [Concomitant]
     Active Substance: LOSARTAN
     Indication: Product used for unknown indication
     Dates: start: 201905
  11. AMLODIPINE [Concomitant]
     Active Substance: AMLODIPINE BESYLATE
     Indication: Product used for unknown indication
     Dates: start: 201905
  12. SIMVASTATIN [Concomitant]
     Active Substance: SIMVASTATIN
     Indication: Product used for unknown indication
     Dates: start: 201905
  13. INSULIN HUMAN [Concomitant]
     Active Substance: INSULIN HUMAN
     Indication: Product used for unknown indication
  14. MANIDIPINE [Concomitant]
     Active Substance: MANIDIPINE
     Indication: Product used for unknown indication
  15. FULVESTRANT [Concomitant]
     Active Substance: FULVESTRANT
     Indication: Product used for unknown indication
     Dates: start: 201905, end: 201911
  16. FULVESTRANT [Concomitant]
     Active Substance: FULVESTRANT
     Dates: start: 202012
  17. PALBOCICLIB [Concomitant]
     Active Substance: PALBOCICLIB
     Indication: Product used for unknown indication
     Dates: start: 201905, end: 201909
  18. CAPECITABINE [Concomitant]
     Active Substance: CAPECITABINE
     Indication: Product used for unknown indication
     Dates: start: 202001

REACTIONS (4)
  - Acute respiratory failure [Unknown]
  - Drug interaction [Unknown]
  - Lactic acidosis [Unknown]
  - Blood creatinine increased [Recovering/Resolving]

NARRATIVE: CASE EVENT DATE: 20190101
